FAERS Safety Report 23311505 (Version 1)
Quarter: 2023Q4

REPORT INFORMATION
  Report Type: Spontaneous
  Country: US (occurrence: US)
  Receive Date: 20231219
  Receipt Date: 20231219
  Transmission Date: 20240110
  Serious: No
  Sender: FDA-Public Use
  Company Number: US-AUROBINDO-AUR-APL-2023-055897

PATIENT
  Age: 60 Year
  Sex: Female
  Weight: 65 kg

DRUGS (2)
  1. FINASTERIDE [Suspect]
     Active Substance: FINASTERIDE
     Indication: Alopecia scarring
     Dosage: 1 MILLIGRAM, ONCE A DAY (ON AN UNKNOWN DATE IN JANUARY)
     Route: 048
  2. NUTRAFOL [Concomitant]
     Indication: Hair growth rate abnormal
     Dosage: UNK
     Route: 065

REACTIONS (2)
  - Therapy cessation [Recovered/Resolved]
  - Off label use [Recovered/Resolved]
